FAERS Safety Report 16222743 (Version 1)
Quarter: 2019Q2

REPORT INFORMATION
  Report Type: Spontaneous
  Country: CN (occurrence: CN)
  Receive Date: 20190422
  Receipt Date: 20190422
  Transmission Date: 20190711
  Serious: Yes (Hospitalization)
  Sender: FDA-Public Use
  Company Number: CN-PFIZER INC-2019171352

PATIENT
  Age: 25 Year
  Sex: Male
  Weight: 85 kg

DRUGS (4)
  1. ETHAMBUTOL [Concomitant]
     Active Substance: ETHAMBUTOL HYDROCHLORIDE
     Indication: TUBERCULOSIS
  2. ISONIAZID. [Concomitant]
     Active Substance: ISONIAZID
     Indication: TUBERCULOSIS
  3. LINEZOLID. [Suspect]
     Active Substance: LINEZOLID
     Indication: INFECTION
     Dosage: 600 MG, 2X/DAY
     Route: 041
     Dates: start: 20190326, end: 20190405
  4. RIFAMPICIN [Concomitant]
     Active Substance: RIFAMPIN
     Indication: TUBERCULOSIS

REACTIONS (3)
  - Blood lactic acid increased [Recovering/Resolving]
  - Sinus tachycardia [Recovering/Resolving]
  - Panic reaction [Recovering/Resolving]

NARRATIVE: CASE EVENT DATE: 20190405
